FAERS Safety Report 22191166 (Version 1)
Quarter: 2023Q2

REPORT INFORMATION
  Report Type: Spontaneous
  Country: GB (occurrence: GB)
  Receive Date: 20230410
  Receipt Date: 20230410
  Transmission Date: 20230721
  Serious: Yes (Death, Other)
  Sender: FDA-Public Use
  Company Number: None

PATIENT
  Age: 92 Year
  Sex: Female
  Weight: 46 kg

DRUGS (17)
  1. MORPHINE SULFATE [Suspect]
     Active Substance: MORPHINE SULFATE
     Indication: Product used for unknown indication
     Dosage: UNK
     Route: 065
     Dates: start: 20161011, end: 20161011
  2. MIDAZOLAM [Suspect]
     Active Substance: MIDAZOLAM
     Indication: Palliative care
     Dosage: 2 INJECTIONS. EVERY 4 HOURS.
     Route: 058
     Dates: start: 20161011
  3. GLYCOPYRRONIUM [Suspect]
     Active Substance: GLYCOPYRRONIUM
     Indication: Secretion discharge
     Dosage: 200 MCG
     Route: 051
     Dates: start: 20161012, end: 20161012
  4. VITAMINS [Concomitant]
     Active Substance: VITAMINS
     Indication: Product used for unknown indication
     Dosage: 8 DROPS GIVEN AT 09.10.
     Route: 065
     Dates: start: 20161012
  5. CALCIUM CARBONATE\CHOLECALCIFEROL [Concomitant]
     Active Substance: CALCIUM CARBONATE\CHOLECALCIFEROL
     Indication: Product used for unknown indication
     Dosage: 1.5G GIVEN AT 09.10
     Route: 065
     Dates: start: 20161012
  6. PENICILLIN G [Concomitant]
     Active Substance: PENICILLIN G
     Indication: Product used for unknown indication
     Dosage: AT 07.18 AND 13.30
     Route: 042
     Dates: start: 20161012
  7. PENICILLIN G [Concomitant]
     Active Substance: PENICILLIN G
     Dosage: AT 00.30
     Route: 042
     Dates: start: 20161013
  8. DALTEPARIN [Concomitant]
     Active Substance: DALTEPARIN
     Indication: Product used for unknown indication
     Dosage: 5000 INTERNATIONAL UNIT
     Route: 058
  9. GENTAMICIN [Concomitant]
     Active Substance: GENTAMICIN
     Indication: Product used for unknown indication
     Dosage: GIVEN AT 00.15
     Route: 042
     Dates: start: 20161012
  10. METRONIDAZOLE [Concomitant]
     Active Substance: METRONIDAZOLE
     Indication: Product used for unknown indication
     Dosage: AT 07.17 AND 14.15
     Route: 042
     Dates: start: 20161012
  11. ALBUTEROL [Concomitant]
     Active Substance: ALBUTEROL
     Indication: Product used for unknown indication
     Dosage: GIVEN AT 22.10, S NECESSARY, INHALATION NEBULISER
     Route: 055
     Dates: start: 20161011
  12. GLYCERIN [Concomitant]
     Active Substance: GLYCERIN
     Indication: Product used for unknown indication
     Dosage: 4 GRAM, AS NECESSARY
     Route: 065
  13. CYCLIZINE [Concomitant]
     Active Substance: CYCLIZINE
     Indication: Product used for unknown indication
     Dosage: AT 10.25 AM, AS NECESSARY
     Route: 042
     Dates: start: 20161011
  14. CYCLIZINE [Concomitant]
     Active Substance: CYCLIZINE
     Dosage: AT 10.25 AM, AS NECESSARY
     Route: 042
     Dates: start: 20161011
  15. LANSOPRAZOLE [Concomitant]
     Active Substance: LANSOPRAZOLE
     Indication: Product used for unknown indication
     Dosage: AT 09.10
     Route: 065
     Dates: start: 20161012
  16. FUROSEMIDE [Concomitant]
     Active Substance: FUROSEMIDE
     Indication: Product used for unknown indication
     Dosage: 20 MILLIGRAM
     Route: 048
     Dates: end: 20161008
  17. ASPIRIN [Concomitant]
     Active Substance: ASPIRIN
     Indication: Product used for unknown indication
     Dosage: GIVEN AT 09.10
     Route: 065
     Dates: start: 20161012

REACTIONS (6)
  - Cardiac arrest [Fatal]
  - Oxygen saturation decreased [Not Recovered/Not Resolved]
  - Dyspnoea [Not Recovered/Not Resolved]
  - Blood pressure decreased [Not Recovered/Not Resolved]
  - Documented hypersensitivity to administered product [Unknown]
  - Product use issue [Unknown]

NARRATIVE: CASE EVENT DATE: 20161012
